FAERS Safety Report 8093312-4 (Version None)
Quarter: 2012Q1

REPORT INFORMATION
  Report Type: 
  Country: None (occurrence: None)
  Receive Date: 20120128
  Receipt Date: 20111025
  Transmission Date: 20120608
  Serious: No
  Sender: FDA-Public Use
  Company Number: US-ABBOTT-11P-163-0847373-00

PATIENT
  Sex: Male
  Weight: 114.86 kg

DRUGS (7)
  1. MERCAPTOPURINE [Concomitant]
     Indication: CROHN'S DISEASE
  2. VITAMIN TAB [Concomitant]
     Indication: PRODUCT USED FOR UNKNOWN INDICATION
     Dosage: DAILY
  3. HUMIRA [Suspect]
     Indication: CROHN'S DISEASE
     Dates: start: 20110501
  4. KLONOPIN [Concomitant]
     Indication: ANXIETY
  5. VERAPAMIL [Concomitant]
     Indication: HYPERTENSION
  6. LOSARTAN POTASSIUM [Concomitant]
     Indication: HYPERTENSION
  7. VALIUM [Concomitant]
     Indication: BACK PAIN
     Dosage: PRIOR TO MONTHLY BACK PROCEDURES

REACTIONS (1)
  - CROHN'S DISEASE [None]
